FAERS Safety Report 7014573-6 (Version None)
Quarter: 2010Q3

REPORT INFORMATION
  Report Type: 
  Country: None (occurrence: None)
  Receive Date: 20100922
  Receipt Date: 20100913
  Transmission Date: 20110219
  Serious: Yes (Hospitalization)
  Sender: FDA-Public Use
  Company Number: 2010US003403

PATIENT
  Age: 65 Year
  Sex: Female

DRUGS (17)
  1. LEXISCAN [Suspect]
     Indication: SCAN MYOCARDIAL PERFUSION
     Dosage: IV NOS
     Route: 042
     Dates: start: 20100818, end: 20100818
  2. ACTOS [Concomitant]
  3. WELLBUTRIN [Concomitant]
  4. PLAVIX [Concomitant]
  5. ENABLEX (DARIFENACIN) [Concomitant]
  6. ZETIA [Concomitant]
  7. FLOVENT [Concomitant]
  8. GLIMEPIRIDE [Concomitant]
  9. IMDUR [Concomitant]
  10. METOPROLOL SUCCINATE [Concomitant]
  11. LYRICA [Concomitant]
  12. SEREVENT [Concomitant]
  13. JANUVIA [Concomitant]
  14. LANTUS [Concomitant]
  15. CRESTOR [Concomitant]
  16. ZANTAC [Concomitant]
  17. NOVOLOG [Concomitant]

REACTIONS (2)
  - CARDIOVASCULAR DISORDER [None]
  - CHEST PAIN [None]
